FAERS Safety Report 6181050-4 (Version None)
Quarter: 2009Q2

REPORT INFORMATION
  Report Type: 
  Country: None (occurrence: None)
  Receive Date: 20090504
  Receipt Date: 20090504
  Transmission Date: 20091009
  Serious: Yes (Other)
  Sender: FDA-Public Use
  Company Number: None

PATIENT
  Age: 4 Year
  Sex: Male
  Weight: 19.5047 kg

DRUGS (1)
  1. SINGULAIR [Suspect]
     Indication: ASTHMA
     Dosage: 4MG ONCE/PER DAY PO
     Route: 048
     Dates: start: 20070401, end: 20090428

REACTIONS (10)
  - ABNORMAL BEHAVIOUR [None]
  - ABNORMAL DREAMS [None]
  - AGGRESSION [None]
  - ANOREXIA [None]
  - CONFUSIONAL STATE [None]
  - DISTURBANCE IN SOCIAL BEHAVIOUR [None]
  - FATIGUE [None]
  - INSOMNIA [None]
  - MOOD SWINGS [None]
  - MORBID THOUGHTS [None]
